FAERS Safety Report 7473957-2 (Version None)
Quarter: 2011Q2

REPORT INFORMATION
  Report Type: 
  Country: None (occurrence: None)
  Receive Date: 20110511
  Receipt Date: 20091122
  Transmission Date: 20111010
  Serious: Yes (Death, Hospitalization, Other)
  Sender: FDA-Public Use
  Company Number: US-BAYER-200940499NA

PATIENT
  Age: 66 Year
  Sex: Female
  Weight: 74.83 kg

DRUGS (24)
  1. LASIX [Concomitant]
     Dosage: 40 MG, BID
     Route: 048
     Dates: end: 20000201
  2. VERSED [Concomitant]
     Dosage: 5 MG, UNK
     Route: 042
     Dates: start: 20000301, end: 20000301
  3. ISOFLURANE [Concomitant]
     Dosage: 0.5, INHALANT
     Dates: start: 20000301, end: 20000301
  4. NITROGLYCERIN [Concomitant]
     Dosage: 10 ML/HOUR
     Route: 042
     Dates: start: 20000301, end: 20000301
  5. TRASYLOL [Suspect]
     Indication: MITRAL VALVE REPLACEMENT
     Dosage: UNK
     Route: 042
     Dates: start: 20000301
  6. NIMBEX [Concomitant]
     Dosage: 20 MG, UNK
     Route: 042
     Dates: start: 20000301, end: 20000301
  7. DOPAMINE HCL [Concomitant]
     Dosage: 12 ML/HOUR
     Route: 042
     Dates: start: 20000301, end: 20000305
  8. ZINACEF [Concomitant]
     Dosage: 1.5 G, UNK
     Route: 042
     Dates: start: 20000301, end: 20000301
  9. TRASYLOL [Suspect]
     Indication: CORONARY ARTERY BYPASS
  10. ASPIRIN [Concomitant]
     Dosage: 325 MG, QD
     Route: 048
     Dates: end: 20000201
  11. NORVASC [Concomitant]
     Dosage: 10 MG, QD
     Route: 048
     Dates: end: 20000201
  12. INSULIN [INSULIN] [Concomitant]
     Dosage: RATE VARIED
     Route: 042
     Dates: start: 20000301, end: 20000304
  13. PROPOFOL [Concomitant]
     Dosage: 75 MG/KG/HOUR
     Route: 042
     Dates: start: 20000301, end: 20000301
  14. ALBUMIN NOS [Concomitant]
     Dosage: 250 ML, CARDIOPULMONARY BYPASS
     Route: 042
     Dates: start: 20000301, end: 20000301
  15. FENTANYL [Concomitant]
     Dosage: 50 ML, UNK
     Route: 042
     Dates: start: 20000301, end: 20000301
  16. COZAAR [Concomitant]
     Dosage: 25 MG, UNK
     Route: 048
     Dates: end: 20000201
  17. LANOXIN [Concomitant]
     Dosage: 0.125 MG, QD
     Route: 048
     Dates: start: 19980101, end: 20000201
  18. GLYBURIDE [Concomitant]
     Dosage: 30 MG, TID
  19. ESMOLOL [Concomitant]
     Dosage: 2.34 G, CARDIOPULMONARY BYPASS
     Dates: start: 20000301, end: 20000301
  20. ACETAMINOPHEN [Concomitant]
     Dosage: UNK
     Dates: end: 20000201
  21. HEPARIN [Concomitant]
     Dosage: 125 ML, UNK
     Route: 042
     Dates: start: 20000301, end: 20000301
  22. PAPAVERINE [PAPAVERINE] [Concomitant]
     Dosage: 90 MG, INJECTABLE
     Dates: start: 20000301, end: 20000301
  23. AMICAR [Concomitant]
     Dosage: UNK
     Dates: start: 20000301
  24. CIPRO [Concomitant]
     Dosage: 500 MG, QD
     Route: 048
     Dates: end: 20000201

REACTIONS (13)
  - PAIN [None]
  - RENAL INJURY [None]
  - UNEVALUABLE EVENT [None]
  - FEAR [None]
  - ANHEDONIA [None]
  - MULTI-ORGAN FAILURE [None]
  - STRESS [None]
  - DEATH [None]
  - ANXIETY [None]
  - INJURY [None]
  - RENAL FAILURE [None]
  - EMOTIONAL DISTRESS [None]
  - RENAL IMPAIRMENT [None]
